FAERS Safety Report 9911523 (Version 1)
Quarter: 2014Q1

REPORT INFORMATION
  Report Type: Spontaneous
  Country: TR (occurrence: TR)
  Receive Date: 20140219
  Receipt Date: 20140219
  Transmission Date: 20141002
  Serious: Yes (Death, Hospitalization)
  Sender: FDA-Public Use
  Company Number: PHHY2014TR015490

PATIENT
  Age: 79 Year
  Sex: Male

DRUGS (11)
  1. DIGOXIN [Suspect]
     Indication: DYSPNOEA
     Dosage: 0.25 MG, UNK
     Route: 048
  2. DIGOXIN [Suspect]
     Indication: LOCAL SWELLING
  3. FUROSEMIDE [Suspect]
     Indication: DYSPNOEA
     Dosage: 40 MG, UNK
  4. FUROSEMIDE [Suspect]
     Indication: LOCAL SWELLING
  5. L-DOPA+BENSERAZIDE [Concomitant]
     Indication: PARKINSON^S DISEASE
     Dosage: 125 MG, TID
  6. L-DOPA+BENSERAZIDE [Concomitant]
     Dosage: 62.5 MG, TID
  7. PIRIBEDIL [Concomitant]
     Indication: PARKINSON^S DISEASE
     Dosage: 50 MG, TID
  8. ASPIRIN [Concomitant]
     Dosage: 300 MG, UNK
  9. RAMIPRIL [Concomitant]
     Dosage: 2.5 MG, UNK
  10. CLONAZEPAM [Concomitant]
     Dosage: 0.2 MG, UNK
  11. DONEPEZIL [Concomitant]
     Dosage: 5 MG, UNK

REACTIONS (16)
  - Sudden death [Fatal]
  - Dementia with Lewy bodies [Unknown]
  - Altered state of consciousness [Not Recovered/Not Resolved]
  - Memory impairment [Unknown]
  - Disorientation [Unknown]
  - Hallucination, visual [Unknown]
  - Somnolence [Unknown]
  - Delirium [Unknown]
  - Bradykinesia [Unknown]
  - Acute prerenal failure [Recovered/Resolved]
  - C-reactive protein increased [Unknown]
  - Dehydration [Unknown]
  - Blood urea increased [Unknown]
  - Blood creatinine increased [Unknown]
  - Nausea [Recovered/Resolved]
  - Vomiting [Recovered/Resolved]
